FAERS Safety Report 5452068-1 (Version None)
Quarter: 2007Q3

REPORT INFORMATION
  Report Type: 
  Country: None (occurrence: None)
  Receive Date: 20070912
  Receipt Date: 20070828
  Transmission Date: 20080115
  Serious: Yes (Hospitalization, Other)
  Sender: FDA-Public Use
  Company Number: 2007BI016765

PATIENT
  Age: 28 Year
  Sex: Male
  Weight: 68.0396 kg

DRUGS (9)
  1. NATALIZUMAB [Suspect]
     Indication: DRUG USE FOR UNKNOWN INDICATION
     Dosage: 300 MG; QM; IV
     Route: 042
     Dates: start: 20060831
  2. ASPIRIN [Concomitant]
  3. COREG [Concomitant]
  4. ACCUPRIL [Concomitant]
  5. AMBIEN [Concomitant]
  6. MULTI-VITAMIN [Concomitant]
  7. DITROPAN [Concomitant]
  8. LEVAQUIN [Concomitant]
  9. BACLOFEN [Concomitant]

REACTIONS (4)
  - MULTIPLE SCLEROSIS [None]
  - PHARYNGEAL OEDEMA [None]
  - RESPIRATORY FAILURE [None]
  - URINARY TRACT INFECTION [None]
